FAERS Safety Report 12947283 (Version 1)
Quarter: 2016Q4

REPORT INFORMATION
  Report Type: Spontaneous
  Country: GB (occurrence: GB)
  Receive Date: 20161116
  Receipt Date: 20161116
  Transmission Date: 20170207
  Serious: Yes (Other)
  Sender: FDA-Public Use
  Company Number: GB-MYLANLABS-2016M1048645

PATIENT

DRUGS (4)
  1. TRAMADOL. [Suspect]
     Active Substance: TRAMADOL
     Indication: BURNS SECOND DEGREE
     Dosage: 200 MG, BID (SUSTAINED RELEASE)
     Route: 048
     Dates: start: 20161028
  2. PARACETAMOL [Concomitant]
     Active Substance: ACETAMINOPHEN
     Dosage: UNK
  3. IBUPROFEN. [Concomitant]
     Active Substance: IBUPROFEN
     Dosage: UNK
  4. TRAMADOL. [Suspect]
     Active Substance: TRAMADOL
     Indication: BURNS SECOND DEGREE
     Dosage: 100 MG, QID (IMMEDIATE RELEASE)
     Route: 048
     Dates: start: 20161025, end: 20161027

REACTIONS (4)
  - Syncope [Unknown]
  - Hiccups [Unknown]
  - Hyperhidrosis [Unknown]
  - Dysuria [Not Recovered/Not Resolved]

NARRATIVE: CASE EVENT DATE: 20161028
